FAERS Safety Report 5682438-8 (Version None)
Quarter: 2008Q1

REPORT INFORMATION
  Report Type: 
  Country: None (occurrence: None)
  Receive Date: 20080326
  Receipt Date: 20080326
  Transmission Date: 20080703
  Serious: Yes (Hospitalization)
  Sender: FDA-Public Use
  Company Number: None

PATIENT
  Sex: Male
  Weight: 86.4 kg

DRUGS (2)
  1. TAXOTERE [Suspect]
     Dosage: 152 MG
  2. PREDNISONE [Suspect]
     Dosage: 10 MG

REACTIONS (8)
  - DEHYDRATION [None]
  - DIARRHOEA [None]
  - GASTROENTERITIS RADIATION [None]
  - HYPERGLYCAEMIA [None]
  - HYPOGLYCAEMIA [None]
  - LEUKOPENIA [None]
  - NEUTROPENIA [None]
  - WEIGHT DECREASED [None]
